FAERS Safety Report 9920025 (Version 3)
Quarter: 2014Q2

REPORT INFORMATION
  Report Type: Spontaneous
  Country: FR (occurrence: FR)
  Receive Date: 20140224
  Receipt Date: 20140416
  Transmission Date: 20141212
  Serious: Yes (Hospitalization, Other)
  Sender: FDA-Public Use
  Company Number: FR-WATSON-2014-02762

PATIENT
  Age: 77 Year
  Sex: Male
  Weight: 110 kg

DRUGS (3)
  1. RAPAFLO (WATSON LABORATORIES) [Suspect]
     Indication: PROSTATE CANCER
     Dosage: 8 MG, DAILY
     Route: 048
     Dates: start: 20140115, end: 20140209
  2. RAPAFLO (WATSON LABORATORIES) [Suspect]
     Indication: DYSURIA
  3. SOTALOL [Concomitant]
     Indication: TACHYCARDIA PAROXYSMAL
     Dosage: 80 MG, BID
     Route: 065
     Dates: start: 2012

REACTIONS (9)
  - Off label use [Recovered/Resolved]
  - Decreased appetite [Recovered/Resolved]
  - Nasal dryness [Recovered/Resolved]
  - Dry skin [Recovered/Resolved]
  - Anxiety [Recovered/Resolved]
  - Anxiety [Recovered/Resolved]
  - Chest discomfort [Recovered/Resolved]
  - Mental disorder [Recovered/Resolved]
  - Presyncope [Recovered/Resolved]
